FAERS Safety Report 9270817 (Version 1)
Quarter: 2013Q2

REPORT INFORMATION
  Report Type: Spontaneous
  Country: FR (occurrence: FR)
  Receive Date: 20130505
  Receipt Date: 20130505
  Transmission Date: 20140414
  Serious: Yes (Other)
  Sender: FDA-Public Use
  Company Number: FR-BRISTOL-MYERS SQUIBB COMPANY-18843052

PATIENT
  Age: 9 Year
  Sex: Male

DRUGS (2)
  1. ABILIFY [Suspect]
     Indication: PSYCHOMOTOR HYPERACTIVITY
     Dosage: SINCE 1 YEAR AND HALF
  2. ABILIFY [Suspect]
     Indication: SCHIZOPHRENIA
     Dosage: SINCE 1 YEAR AND HALF

REACTIONS (1)
  - Schizophrenia [Unknown]
